FAERS Safety Report 4648795-6 (Version None)
Quarter: 2005Q2

REPORT INFORMATION
  Report Type: 
  Country: None (occurrence: None)
  Receive Date: 20050429
  Receipt Date: 20050415
  Transmission Date: 20051028
  Serious: Yes (Death, Hospitalization)
  Sender: FDA-Public Use
  Company Number: JP-JNJFOC-20050405625

PATIENT
  Age: 68 Year
  Sex: Male

DRUGS (5)
  1. CRAVIT [Suspect]
     Indication: PNEUMONIA
     Route: 049
     Dates: start: 20050411, end: 20050412
  2. LOXONIN [Concomitant]
     Route: 049
     Dates: start: 20050411
  3. EMPYNASE [Concomitant]
     Route: 049
     Dates: start: 20050411
  4. EMPYNASE [Concomitant]
     Route: 049
     Dates: start: 20050411
  5. RESPLEN [Concomitant]
     Route: 049
     Dates: start: 20050411

REACTIONS (5)
  - ANAPHYLACTIC SHOCK [None]
  - DEATH [None]
  - HAEMODIALYSIS [None]
  - MULTI-ORGAN FAILURE [None]
  - RHABDOMYOLYSIS [None]
